FAERS Safety Report 18888454 (Version 1)
Quarter: 2021Q1

REPORT INFORMATION
  Report Type: Spontaneous
  Country: US (occurrence: US)
  Receive Date: 20210212
  Receipt Date: 20210212
  Transmission Date: 20210420
  Serious: Yes (Disabling, Other)
  Sender: FDA-Public Use
  Company Number: US-SA-2020SA223930

PATIENT
  Age: 77 Year
  Sex: Female

DRUGS (1)
  1. LANTUS SOLOSTAR [Suspect]
     Active Substance: INSULIN GLARGINE
     Dosage: 30?40 UNITS ONCE DAILY
     Route: 065
     Dates: start: 20160205

REACTIONS (3)
  - Hemianaesthesia [Unknown]
  - Neck surgery [Unknown]
  - Walking aid user [Unknown]

NARRATIVE: CASE EVENT DATE: 2018
